FAERS Safety Report 11234196 (Version 3)
Quarter: 2015Q3

REPORT INFORMATION
  Report Type: Spontaneous
  Country: US (occurrence: US)
  Receive Date: 20150702
  Receipt Date: 20150820
  Transmission Date: 20151125
  Serious: Yes (Hospitalization, Other)
  Sender: FDA-Public Use
  Company Number: US-PFIZER INC-2015217772

PATIENT
  Age: 55 Year
  Sex: Female
  Weight: 68 kg

DRUGS (5)
  1. LEVOXYL [Suspect]
     Active Substance: LEVOTHYROXINE SODIUM
     Dosage: 75 ?G, UNK
  2. BENICAR [Concomitant]
     Active Substance: OLMESARTAN MEDOXOMIL
     Indication: BLOOD PRESSURE INCREASED
     Dosage: UNK
  3. LEVOXYL [Suspect]
     Active Substance: LEVOTHYROXINE SODIUM
     Dosage: 44 ?G, CUTTING THE DOSE IN HALF
     Dates: start: 201506
  4. CLARITIN [Concomitant]
     Active Substance: LORATADINE
     Indication: HYPERSENSITIVITY
     Dosage: 10 MG, EVERY THREE WEEKS
  5. LEVOXYL [Suspect]
     Active Substance: LEVOTHYROXINE SODIUM
     Indication: HYPOTHYROIDISM
     Dosage: 88 ?G, UNK
     Dates: start: 201502

REACTIONS (16)
  - Hypertension [Unknown]
  - Anxiety [Not Recovered/Not Resolved]
  - Myocardial ischaemia [Unknown]
  - Feeling abnormal [Unknown]
  - Fluid retention [Unknown]
  - Intentional product misuse [Unknown]
  - Dyspnoea [Unknown]
  - Palpitations [Unknown]
  - Inflammatory bowel disease [Unknown]
  - Dizziness [Unknown]
  - Condition aggravated [Unknown]
  - Pain [Unknown]
  - Weight decreased [Not Recovered/Not Resolved]
  - Chest discomfort [Unknown]
  - Pollakiuria [Unknown]
  - Gastrointestinal disorder [Unknown]

NARRATIVE: CASE EVENT DATE: 201502
